FAERS Safety Report 10146032 (Version 6)
Quarter: 2015Q2

REPORT INFORMATION
  Report Type: Report from Study
  Country: AU (occurrence: AU)
  Receive Date: 20140501
  Receipt Date: 20150505
  Transmission Date: 20150821
  Serious: Yes (Hospitalization, Other)
  Sender: FDA-Public Use
  Company Number: PHHY2014AU052523

PATIENT
  Age: 26 Year
  Sex: Male

DRUGS (23)
  1. CLOZARIL [Suspect]
     Active Substance: CLOZAPINE
     Indication: SCHIZOPHRENIA
     Dosage: 600 MG, QHS
     Route: 048
     Dates: start: 20081230, end: 201404
  2. CLOZARIL [Suspect]
     Active Substance: CLOZAPINE
     Dosage: UNK
     Route: 048
     Dates: end: 201405
  3. DULOXETINE [Concomitant]
     Active Substance: DULOXETINE
     Indication: SCHIZOPHRENIA
     Dosage: 60 MG, UNK
     Route: 048
     Dates: start: 20100921
  4. PERINDOPRIL [Concomitant]
     Active Substance: PERINDOPRIL
     Dosage: 5 MG, QD, MANE
     Route: 048
  5. FLUOXETINE [Concomitant]
     Active Substance: FLUOXETINE\FLUOXETINE HYDROCHLORIDE
     Indication: PRODUCT USED FOR UNKNOWN INDICATION
     Dosage: 60 MG, QD, MANE
     Route: 048
  6. BICOR [Concomitant]
     Active Substance: BISOPROLOL FUMARATE
     Dosage: 5 MG, QD
     Route: 065
  7. BISOPROLOL [Concomitant]
     Active Substance: BISOPROLOL
     Dosage: 10 MG, QD, MANE
     Route: 048
  8. QUETIAPINE XR [Concomitant]
     Active Substance: QUETIAPINE
     Indication: PRODUCT USED FOR UNKNOWN INDICATION
     Dosage: 800 MG, QHS
     Route: 048
  9. ARIPIPRAZOLE. [Concomitant]
     Active Substance: ARIPIPRAZOLE
     Indication: PRODUCT USED FOR UNKNOWN INDICATION
     Dosage: 400 MG, 4 WEEKLY
     Route: 030
  10. TETRAHYDROCANNABINOL [Concomitant]
     Active Substance: DRONABINOL
     Indication: PRODUCT USED FOR UNKNOWN INDICATION
     Dosage: UNK
     Route: 065
  11. QUETIAPINE XR [Concomitant]
     Active Substance: QUETIAPINE
     Dosage: 600 MG, NOCTE
     Route: 065
  12. SODIUM VALPROATE [Concomitant]
     Active Substance: VALPROATE SODIUM
     Indication: PRODUCT USED FOR UNKNOWN INDICATION
     Dosage: 1 G, BID
     Route: 048
  13. SPIRONOLACTONE. [Concomitant]
     Active Substance: SPIRONOLACTONE
     Indication: PRODUCT USED FOR UNKNOWN INDICATION
     Dosage: 25 MG, QD, MANE
     Route: 048
  14. BICOR [Concomitant]
     Active Substance: BISOPROLOL FUMARATE
     Indication: PRODUCT USED FOR UNKNOWN INDICATION
     Dosage: 2.5 MG, QD
     Route: 065
  15. BICOR [Concomitant]
     Active Substance: BISOPROLOL FUMARATE
     Dosage: 10 MG, QD
     Route: 065
  16. BISOPROLOL [Concomitant]
     Active Substance: BISOPROLOL
     Indication: PRODUCT USED FOR UNKNOWN INDICATION
     Dosage: 5 MG, QD
     Route: 048
  17. PERINDOPRIL [Concomitant]
     Active Substance: PERINDOPRIL
     Indication: PRODUCT USED FOR UNKNOWN INDICATION
     Dosage: 5 MG, TID
     Route: 048
  18. ASPIRIN. [Concomitant]
     Active Substance: ASPIRIN
     Indication: PRODUCT USED FOR UNKNOWN INDICATION
     Dosage: 100 MG, QD, MANE
     Route: 048
  19. CHOLECALCIFEROL [Concomitant]
     Active Substance: CHOLECALCIFEROL
     Dosage: 1000 IU, MANE
     Route: 065
  20. ALDACTONE [Concomitant]
     Active Substance: SPIRONOLACTONE
     Indication: PRODUCT USED FOR UNKNOWN INDICATION
     Dosage: 25 OT
     Route: 065
  21. AMISULPRIDE [Concomitant]
     Active Substance: AMISULPRIDE
     Indication: SCHIZOPHRENIA
     Dosage: 400 MG, NOCTE
     Route: 048
     Dates: start: 20111011
  22. PROPRANOLOL [Concomitant]
     Active Substance: PROPRANOLOL\PROPRANOLOL HYDROCHLORIDE
     Indication: PRODUCT USED FOR UNKNOWN INDICATION
     Dosage: 75 MG, BID
     Route: 065
  23. CHOLECALCIFEROL [Concomitant]
     Active Substance: CHOLECALCIFEROL
     Indication: PRODUCT USED FOR UNKNOWN INDICATION
     Dosage: 25 UG, QD
     Route: 048

REACTIONS (24)
  - Left ventricular dysfunction [Unknown]
  - Dilatation ventricular [Unknown]
  - Mitral valve incompetence [Unknown]
  - Exercise tolerance decreased [Unknown]
  - Mental disorder [Unknown]
  - Schizophrenia [Not Recovered/Not Resolved]
  - Blood uric acid increased [Recovered/Resolved]
  - Cardiac failure [Recovering/Resolving]
  - Weight increased [Unknown]
  - Red cell distribution width increased [Recovered/Resolved]
  - Agitation [Unknown]
  - Left ventricular hypertrophy [Unknown]
  - Dyspnoea [Unknown]
  - Cardiomegaly [Unknown]
  - Psychotic disorder [Unknown]
  - Ejection fraction decreased [Recovering/Resolving]
  - Red cell distribution width increased [Recovering/Resolving]
  - Extrasystoles [Unknown]
  - Fatigue [Unknown]
  - Antipsychotic drug level above therapeutic [Recovered/Resolved]
  - Congestive cardiomyopathy [Recovered/Resolved with Sequelae]
  - Sinus tachycardia [Unknown]
  - Alanine aminotransferase increased [Recovered/Resolved]
  - Aortic dilatation [Unknown]

NARRATIVE: CASE EVENT DATE: 2008
